FAERS Safety Report 23137033 (Version 1)
Quarter: 2023Q4

REPORT INFORMATION
  Report Type: Spontaneous
  Country: US (occurrence: US)
  Receive Date: 20231102
  Receipt Date: 20231102
  Transmission Date: 20240109
  Serious: Yes (Hospitalization, Other)
  Sender: FDA-Public Use
  Company Number: US-AMGEN-USASP2023192258

PATIENT

DRUGS (2)
  1. ADALIMUMAB [Suspect]
     Active Substance: ADALIMUMAB\ISOPROPYL ALCOHOL
     Indication: Inflammatory bowel disease
     Dosage: UNK
     Route: 065
  2. VEDOLIZUMAB [Suspect]
     Active Substance: VEDOLIZUMAB
     Indication: Inflammatory bowel disease
     Route: 065

REACTIONS (10)
  - Large intestinal stenosis [Unknown]
  - Unevaluable event [Unknown]
  - Pneumonia [Unknown]
  - Cellulitis [Unknown]
  - Pityriasis rosea [Unknown]
  - COVID-19 [Unknown]
  - Tracheitis [Unknown]
  - Molluscum contagiosum [Unknown]
  - Influenza [Unknown]
  - Upper respiratory tract infection [Unknown]
